FAERS Safety Report 7650874-6 (Version None)
Quarter: 2011Q3

REPORT INFORMATION
  Report Type: 
  Country: None (occurrence: None)
  Receive Date: 20110802
  Receipt Date: 20110727
  Transmission Date: 20111222
  Serious: Yes (Death, Other)
  Sender: FDA-Public Use
  Company Number: US-CELGENEUS-163-21880-11043610

PATIENT
  Age: 64 Year
  Sex: Male

DRUGS (17)
  1. REVLIMID [Suspect]
     Indication: MULTIPLE MYELOMA
     Dosage: 5 MILLIGRAM
     Route: 048
     Dates: start: 20060701
  2. REVLIMID [Suspect]
     Dosage: 5 MILLIGRAM
     Route: 048
     Dates: start: 20071001
  3. REVLIMID [Suspect]
     Dosage: 10 MILLIGRAM
     Route: 048
     Dates: start: 20100101, end: 20100701
  4. SCOPOLAMINE [Concomitant]
     Route: 065
  5. EPOETIN [Concomitant]
     Route: 065
  6. ONDANSETRON [Concomitant]
     Route: 065
  7. REVLIMID [Suspect]
     Dosage: 25 MILLIGRAM
     Route: 048
     Dates: start: 20080301, end: 20081201
  8. MEGESTROL ACETATE [Concomitant]
     Route: 065
  9. MORPHINE [Concomitant]
     Route: 065
  10. OMEPRAZOLE [Concomitant]
     Route: 065
  11. LORAZEPAM [Concomitant]
     Route: 065
  12. VELCADE [Concomitant]
     Route: 065
  13. DEXAMETHASONE [Concomitant]
     Indication: MULTIPLE MYELOMA
     Route: 065
     Dates: start: 20080301
  14. MELPHALAN HYDROCHLORIDE [Concomitant]
     Indication: MULTIPLE MYELOMA
     Route: 065
     Dates: start: 20100401, end: 20100501
  15. SIMVASTATIN [Concomitant]
     Route: 065
  16. GABAPENTIN [Concomitant]
     Route: 065
  17. CYCLOPHOSPHAMIDE [Concomitant]
     Route: 065

REACTIONS (3)
  - RENAL IMPAIRMENT [None]
  - THROMBOCYTOPENIA [None]
  - MULTIPLE MYELOMA [None]
